FAERS Safety Report 8949336 (Version 2)
Quarter: 2012Q4

REPORT INFORMATION
  Report Type: 
  Country: CH (occurrence: CH)
  Receive Date: 20121206
  Receipt Date: 20121224
  Transmission Date: 20130627
  Serious: Yes (Death, Hospitalization, Other)
  Sender: FDA-Public Use
  Company Number: PHHY2012CH112195

PATIENT
  Age: 76 Year
  Sex: Male

DRUGS (2)
  1. METHOTREXATE [Suspect]
     Indication: RHEUMATOID ARTHRITIS
  2. PREDNISONE [Suspect]
     Indication: RHEUMATOID ARTHRITIS

REACTIONS (17)
  - Meningitis cryptococcal [Fatal]
  - Syncope [Fatal]
  - Aphasia [Fatal]
  - Paresis [Fatal]
  - Tremor [Fatal]
  - Muscular weakness [Fatal]
  - Pyrexia [Fatal]
  - Pupils unequal [Fatal]
  - Gait disturbance [Fatal]
  - Interstitial lung disease [Unknown]
  - Lung infiltration [Unknown]
  - Asthenia [Unknown]
  - General physical health deterioration [Unknown]
  - Hyperthyroidism [Unknown]
  - Bronchopneumonia [Unknown]
  - Diarrhoea [Unknown]
  - Weight decreased [Unknown]
